FAERS Safety Report 16738717 (Version 3)
Quarter: 2019Q3

REPORT INFORMATION
  Report Type: Spontaneous
  Country: JP (occurrence: JP)
  Receive Date: 20190826
  Receipt Date: 20190930
  Transmission Date: 20191005
  Serious: Yes (Death, Hospitalization, Other)
  Sender: FDA-Public Use
  Company Number: JP-ABBVIE-19K-087-2901600-00

PATIENT
  Age: 80 Year
  Sex: Female

DRUGS (4)
  1. MAVIRET [Suspect]
     Active Substance: GLECAPREVIR\PIBRENTASVIR
     Indication: CHRONIC HEPATITIS C
     Route: 048
     Dates: start: 20190619
  2. BENIDIPINE HYDROCHLORIDE [Concomitant]
     Active Substance: BENIDIPINE HYDROCHLORIDE
     Indication: HYPERTENSION
     Route: 048
  3. URSODEOXYCHOLIC ACID [Concomitant]
     Active Substance: URSODIOL
     Indication: HEPATIC FUNCTION ABNORMAL
     Route: 048
  4. LAFUTIDINE [Concomitant]
     Active Substance: LAFUTIDINE
     Indication: GASTRIC MUCOSAL LESION
     Route: 048

REACTIONS (11)
  - Septic shock [Fatal]
  - Toxic shock syndrome [Unknown]
  - Blood pressure systolic abnormal [Unknown]
  - Back pain [Unknown]
  - Hypophagia [Unknown]
  - Gait disturbance [Unknown]
  - Mobility decreased [Unknown]
  - General physical health deterioration [Unknown]
  - Haemorrhage subcutaneous [Unknown]
  - Lumbar spinal stenosis [Unknown]
  - Skin exfoliation [Unknown]

NARRATIVE: CASE EVENT DATE: 2019
